FAERS Safety Report 22588008 (Version 1)
Quarter: 2023Q2

REPORT INFORMATION
  Report Type: Spontaneous
  Country: FR (occurrence: FR)
  Receive Date: 20230612
  Receipt Date: 20230612
  Transmission Date: 20230722
  Serious: Yes (Death)
  Sender: FDA-Public Use
  Company Number: None

PATIENT
  Age: 63 Year
  Sex: Female
  Weight: 40 kg

DRUGS (3)
  1. CYCLOPHOSPHAMIDE [Suspect]
     Active Substance: CYCLOPHOSPHAMIDE
     Indication: Thrombotic microangiopathy
     Dosage: 500 MG, QD
     Route: 042
     Dates: start: 20230316, end: 20230324
  2. SOLIRIS [Suspect]
     Active Substance: ECULIZUMAB
     Indication: Thrombotic microangiopathy
     Dosage: 900 MG, 1 TOTAL, DOSAGE FORM: SOLUTION DILUTE FOR PERFUSION
     Route: 042
     Dates: start: 20230321, end: 20230321
  3. SOLIRIS [Suspect]
     Active Substance: ECULIZUMAB
     Dosage: 600 MG, 1 TOTAL, DOSAGE FORM: SOLUTION DILUTE FOR PERFUSION
     Route: 042
     Dates: start: 20230313, end: 20230313

REACTIONS (1)
  - Stress cardiomyopathy [Fatal]

NARRATIVE: CASE EVENT DATE: 20230324
